FAERS Safety Report 7251116-6 (Version None)
Quarter: 2011Q1

REPORT INFORMATION
  Report Type: 
  Country: None (occurrence: None)
  Receive Date: 20110128
  Receipt Date: 20110121
  Transmission Date: 20110831
  Serious: Yes (Hospitalization)
  Sender: FDA-Public Use
  Company Number: JP-PFIZER INC-2010143231

PATIENT
  Age: 78 Year
  Sex: Female

DRUGS (2)
  1. ZYVOX [Suspect]
     Indication: MYELITIS
     Dosage: UNK
     Route: 041
     Dates: start: 20101012, end: 20101104
  2. ZYVOX [Suspect]
     Dosage: UNK
     Route: 048
     Dates: start: 20101105

REACTIONS (2)
  - VOMITING [None]
  - NAUSEA [None]
